FAERS Safety Report 21816104 (Version 1)
Quarter: 2023Q1

REPORT INFORMATION
  Report Type: Other
  Country: US (occurrence: None)
  Receive Date: 20230104
  Receipt Date: 20230104
  Transmission Date: 20230417
  Serious: Yes (Death, Hospitalization)
  Sender: FDA-Public Use
  Company Number: US-ROCHE-3255554

PATIENT
  Age: 64 Year
  Sex: Male

DRUGS (2)
  1. RITUXIMAB [Suspect]
     Active Substance: RITUXIMAB
     Indication: Mantle cell lymphoma
     Dosage: RECEIVED TWO DOSES BY DEC/2020.
     Route: 065
  2. BAMLANIVIMAB [Concomitant]
     Active Substance: BAMLANIVIMAB

REACTIONS (3)
  - COVID-19 [Fatal]
  - Acute respiratory distress syndrome [Unknown]
  - Pneumonia [Unknown]
